FAERS Safety Report 25575169 (Version 1)
Quarter: 2025Q3

REPORT INFORMATION
  Report Type: Spontaneous
  Country: EU (occurrence: EU)
  Receive Date: 20250718
  Receipt Date: 20250718
  Transmission Date: 20251020
  Serious: Yes (Hospitalization, Other)
  Sender: CHEPLAPHARM
  Company Number: None

PATIENT
  Age: 35 Year
  Sex: Male

DRUGS (10)
  1. CLONAZEPAM [Suspect]
     Active Substance: CLONAZEPAM
  2. OXAZEPAM [Suspect]
     Active Substance: OXAZEPAM
  3. ZOLPIDEM [Suspect]
     Active Substance: ZOLPIDEM TARTRATE
  4. MIDOMAFETAMINE [Suspect]
     Active Substance: MIDOMAFETAMINE
  5. CANNABIS SATIVA SUBSP. INDICA TOP [Suspect]
     Active Substance: CANNABIS SATIVA SUBSP. INDICA TOP
  6. TENAMFETAMINE [Suspect]
     Active Substance: TENAMFETAMINE
  7. AMPHETAMINE [Suspect]
     Active Substance: AMPHETAMINE
  8. COCAINE [Suspect]
     Active Substance: COCAINE
  9. LYRICA [Suspect]
     Active Substance: PREGABALIN
  10. SUBUTEX [Suspect]
     Active Substance: BUPRENORPHINE HYDROCHLORIDE

REACTIONS (6)
  - Toxicity to various agents [Unknown]
  - Altered state of consciousness [Recovered/Resolved]
  - Hyperhidrosis [Recovered/Resolved]
  - Hypercapnia [Recovered/Resolved]
  - Drug use disorder [Unknown]
  - Mydriasis [Unknown]
